FAERS Safety Report 6197102-9 (Version None)
Quarter: 2009Q2

REPORT INFORMATION
  Report Type: 
  Country: None (occurrence: None)
  Receive Date: 20090518
  Receipt Date: 20090518
  Transmission Date: 20091009
  Serious: Yes (Other)
  Sender: FDA-Public Use
  Company Number: None

PATIENT
  Age: 37 Year
  Sex: Female
  Weight: 56.246 kg

DRUGS (4)
  1. ADDERALL XR 20 [Suspect]
     Indication: BIPOLAR DISORDER
     Dosage: 40 MG 1 X DAY PO
     Route: 048
     Dates: start: 20090105, end: 20090516
  2. ADDERALL XR 20 [Suspect]
     Indication: LETHARGY
     Dosage: 40 MG 1 X DAY PO
     Route: 048
     Dates: start: 20090105, end: 20090516
  3. CYTOMEL [Suspect]
     Indication: BIPOLAR DISORDER
     Dosage: 50 MCG 1 X DAY OTHER
     Route: 050
     Dates: start: 20090321, end: 20090516
  4. CYTOMEL [Suspect]
     Indication: LETHARGY
     Dosage: 50 MCG 1 X DAY OTHER
     Route: 050
     Dates: start: 20090321, end: 20090516

REACTIONS (7)
  - ABDOMINAL PAIN UPPER [None]
  - CHEST PAIN [None]
  - DIZZINESS [None]
  - DYSPNOEA [None]
  - FEELING COLD [None]
  - HYPERHIDROSIS [None]
  - NAUSEA [None]
